FAERS Safety Report 26159915 (Version 1)
Quarter: 2025Q4

REPORT INFORMATION
  Report Type: Spontaneous
  Country: JP (occurrence: JP)
  Receive Date: 20251216
  Receipt Date: 20251216
  Transmission Date: 20260118
  Serious: Yes (Other)
  Sender: ALEXION PHARMACEUTICALS
  Company Number: JP-ASTRAZENECA-202512JPN008099JP

PATIENT
  Age: 76 Year

DRUGS (3)
  1. TRUQAP [Suspect]
     Active Substance: CAPIVASERTIB
     Indication: Breast cancer
     Dosage: UNK
     Route: 065
  2. FASLODEX [Suspect]
     Active Substance: FULVESTRANT
     Indication: Breast cancer
     Dosage: UNK
     Route: 065
  3. FASLODEX [Suspect]
     Active Substance: FULVESTRANT

REACTIONS (3)
  - Metastases to lymph nodes [Unknown]
  - Metastases to lung [Unknown]
  - Metastases to liver [Unknown]
